FAERS Safety Report 6390443-1 (Version None)
Quarter: 2009Q4

REPORT INFORMATION
  Report Type: 
  Country: None (occurrence: None)
  Receive Date: 20091006
  Receipt Date: 20090929
  Transmission Date: 20100525
  Serious: Yes (Other)
  Sender: FDA-Public Use
  Company Number: US-AVENTIS-200918047US

PATIENT
  Sex: Male
  Weight: 94 kg

DRUGS (9)
  1. LANTUS [Suspect]
     Route: 058
     Dates: start: 20060101
  2. OPTICLIK (INSULIN INJECTION PEN) [Suspect]
     Dates: start: 20060101
  3. DIOVANE [Concomitant]
  4. COUMADIN [Concomitant]
  5. FOLIC ACID [Concomitant]
     Dosage: DOSE: UNK
  6. LIPITOR [Concomitant]
  7. ORAL ANTIDIABETICS [Concomitant]
  8. TRICOR [Concomitant]
  9. FUROSEMIDE [Concomitant]
     Dosage: DOSE: UNK

REACTIONS (1)
  - LEUKAEMIA RECURRENT [None]
